FAERS Safety Report 4377351-2 (Version None)
Quarter: 2004Q2

REPORT INFORMATION
  Report Type: 
  Country: None (occurrence: None)
  Receive Date: 20040614
  Receipt Date: 20040614
  Transmission Date: 20050107
  Serious: Yes (Life-Threatening, Hospitalization)
  Sender: FDA-Public Use
  Company Number: None

PATIENT
  Age: 24 Year
  Sex: Female
  Weight: 88.4514 kg

DRUGS (3)
  1. ETHYOL [Suspect]
     Indication: PROPHYLAXIS
     Dosage: 2 INJECT INTRAVENOUS
     Route: 042
     Dates: start: 20030204, end: 20030315
  2. ETHYOL [Suspect]
     Indication: RADIOTHERAPY
     Dosage: 2 INJECT INTRAVENOUS
     Route: 042
     Dates: start: 20030204, end: 20030315
  3. ETHYOL [Suspect]
     Indication: SALIVARY GLAND DISORDER
     Dosage: 2 INJECT INTRAVENOUS
     Route: 042
     Dates: start: 20030204, end: 20030315

REACTIONS (8)
  - ALOPECIA [None]
  - HYPERHIDROSIS [None]
  - INADEQUATE DIET [None]
  - SALIVA ALTERED [None]
  - SCAR [None]
  - SPEECH DISORDER [None]
  - STEVENS-JOHNSON SYNDROME [None]
  - VOMITING [None]
